FAERS Safety Report 16118917 (Version 3)
Quarter: 2019Q2

REPORT INFORMATION
  Report Type: Spontaneous
  Country: US (occurrence: US)
  Receive Date: 20190326
  Receipt Date: 20190506
  Transmission Date: 20190711
  Serious: Yes (Other)
  Sender: FDA-Public Use
  Company Number: US-BAYER-2019-058791

PATIENT
  Age: 32 Year
  Sex: Female
  Weight: 73.02 kg

DRUGS (3)
  1. MIRENA [Suspect]
     Active Substance: LEVONORGESTREL
     Indication: CONTRACEPTION
     Dosage: 20 MCG/24HR, CONT
     Route: 015
  2. MIRENA [Suspect]
     Active Substance: LEVONORGESTREL
     Indication: CONTRACEPTION
     Dosage: 20 MCG/24HR, CONT
     Route: 015
     Dates: start: 20170822, end: 20190408
  3. MIRENA [Suspect]
     Active Substance: LEVONORGESTREL

REACTIONS (8)
  - Medical device monitoring error [None]
  - Pre-eclampsia [None]
  - Amenorrhoea [Not Recovered/Not Resolved]
  - Pregnancy with contraceptive device [None]
  - Vaginal haemorrhage [None]
  - Amenorrhoea [None]
  - Abdominal pain lower [None]
  - Contraindicated device used [None]

NARRATIVE: CASE EVENT DATE: 20161126
